FAERS Safety Report 8852105 (Version 1)
Quarter: 2012Q4

REPORT INFORMATION
  Report Type: Spontaneous
  Country: DK (occurrence: None)
  Receive Date: 20121017
  Receipt Date: 20121017
  Transmission Date: 20130627
  Serious: Yes (Other)
  Sender: FDA-Public Use
  Company Number: 2012MA012314

PATIENT
  Sex: Female

DRUGS (2)
  1. LEVETIRACETAM [Suspect]
     Indication: EPILEPSY
  2. TRILEPTAL [Suspect]
     Dosage: 900 MG;QD;UNK

REACTIONS (2)
  - Abortion spontaneous [None]
  - Exposure during pregnancy [None]
